FAERS Safety Report 19233985 (Version 1)
Quarter: 2021Q2

REPORT INFORMATION
  Report Type: Spontaneous
  Country: US (occurrence: US)
  Receive Date: 20210508
  Receipt Date: 20210508
  Transmission Date: 20210717
  Serious: Yes (Other)
  Sender: FDA-Public Use
  Company Number: US-TEVA-2021-US-1908877

PATIENT
  Age: 30 Year
  Sex: Female

DRUGS (6)
  1. RAMOTRIVINE [Concomitant]
  2. GABATENTIN [Concomitant]
  3. VYNEALTA [Concomitant]
  4. RIZATRIPTAN. [Concomitant]
     Active Substance: RIZATRIPTAN
  5. AJOVY [Suspect]
     Active Substance: FREMANEZUMAB-VFRM
     Indication: MIGRAINE
     Dosage: DOSE: 225 MG, MONTHLY
     Route: 065
     Dates: start: 20210421
  6. AJOVY [Suspect]
     Active Substance: FREMANEZUMAB-VFRM

REACTIONS (5)
  - Throat tightness [Unknown]
  - Chest discomfort [Unknown]
  - Urticaria [Unknown]
  - Drug hypersensitivity [Unknown]
  - Dysphonia [Unknown]

NARRATIVE: CASE EVENT DATE: 202104
